FAERS Safety Report 18447280 (Version 1)
Quarter: 2020Q4

REPORT INFORMATION
  Report Type: Spontaneous
  Country: JP (occurrence: JP)
  Receive Date: 20201030
  Receipt Date: 20201030
  Transmission Date: 20210114
  Serious: Yes (Hospitalization, Other)
  Sender: FDA-Public Use
  Company Number: NVSJ2020JP010965

PATIENT
  Age: 92 Year
  Sex: Female
  Weight: 49.5 kg

DRUGS (2)
  1. METHOTREXATE CAPSULE [Suspect]
     Active Substance: METHOTREXATE
     Indication: RHEUMATOID ARTHRITIS
     Dosage: 4 MG, QW
     Route: 065
  2. PREDNISOLONE. [Concomitant]
     Active Substance: PREDNISOLONE
     Indication: PRODUCT USED FOR UNKNOWN INDICATION
     Dosage: 5 MG
     Route: 065

REACTIONS (8)
  - Pyrexia [Recovered/Resolved]
  - Platelet count decreased [Recovered/Resolved]
  - Altered state of consciousness [Recovered/Resolved]
  - Folate deficiency [Recovered/Resolved]
  - Agranulocytosis [Recovered/Resolved]
  - Nutritional condition abnormal [Recovered/Resolved]
  - Staphylococcus test positive [Recovered/Resolved]
  - Mouth ulceration [Recovered/Resolved]
